FAERS Safety Report 25329981 (Version 1)
Quarter: 2025Q2

REPORT INFORMATION
  Report Type: Report from Study
  Country: CA (occurrence: CA)
  Receive Date: 20250519
  Receipt Date: 20250519
  Transmission Date: 20250716
  Serious: Yes (Hospitalization, Other)
  Sender: CELLTRION
  Company Number: CA-CELLTRION INC.-2025CA014620

PATIENT

DRUGS (15)
  1. RITUXIMAB [Suspect]
     Active Substance: RITUXIMAB
     Indication: Rheumatoid arthritis
     Route: 042
  2. ACRIVASTINE [Concomitant]
     Active Substance: ACRIVASTINE
     Route: 048
  3. CITALOPRAM [Concomitant]
     Active Substance: CITALOPRAM
     Indication: Depression
  4. DOCUSATE [Concomitant]
     Active Substance: DOCUSATE
  5. DONEPEZIL [Concomitant]
     Active Substance: DONEPEZIL
     Indication: Dementia
  6. GLICLAZIDE [Concomitant]
     Active Substance: GLICLAZIDE
     Indication: Diabetes mellitus
  7. IRON [Concomitant]
     Active Substance: IRON
  8. METFORMIN [Concomitant]
     Active Substance: METFORMIN HYDROCHLORIDE
  9. METHOTREXATE [Concomitant]
     Active Substance: METHOTREXATE
  10. METHYLPREDNISOLONE SODIUM SUCCINATE [Concomitant]
     Active Substance: METHYLPREDNISOLONE SODIUM SUCCINATE
     Route: 042
  11. PANTOPRAZOLE [Concomitant]
     Active Substance: PANTOPRAZOLE
  12. TYLENOL [Concomitant]
     Active Substance: ACETAMINOPHEN
     Indication: Premedication
     Route: 048
  13. UMECLIDINIUM BROMIDE [Concomitant]
     Active Substance: UMECLIDINIUM BROMIDE
     Indication: Emphysema
  14. VITAMIN B12 [Concomitant]
     Active Substance: CYANOCOBALAMIN
  15. XARELTO [Concomitant]
     Active Substance: RIVAROXABAN

REACTIONS (4)
  - Fall [Unknown]
  - Pulmonary mass [Unknown]
  - Pneumonia [Unknown]
  - Intentional product use issue [Unknown]
